FAERS Safety Report 4448728-1 (Version None)
Quarter: 2004Q3

REPORT INFORMATION
  Report Type: 
  Country: None (occurrence: None)
  Receive Date: 20040909
  Receipt Date: 20040901
  Transmission Date: 20050211
  Serious: Yes (Other)
  Sender: FDA-Public Use
  Company Number: KII-2001-0013257

PATIENT
  Sex: Male

DRUGS (1)
  1. MS CONTIN [Suspect]
     Dosage: 30 MG , BID

REACTIONS (2)
  - ALANINE AMINOTRANSFERASE INCREASED [None]
  - SOMNOLENCE [None]
